FAERS Safety Report 18548723 (Version 1)
Quarter: 2020Q4

REPORT INFORMATION
  Report Type: Other
  Country: US (occurrence: US)
  Receive Date: 20201126
  Receipt Date: 20201126
  Transmission Date: 20210114
  Serious: Yes (Other)
  Sender: FDA-Public Use
  Company Number: US-ROCHE-2034602

PATIENT
  Sex: Female
  Weight: 89.8 kg

DRUGS (23)
  1. CELLCEPT [Suspect]
     Active Substance: MYCOPHENOLATE MOFETIL\MYCOPHENOLATE MOFETIL HYDROCHLORIDE
     Indication: AUTOIMMUNE HEPATITIS
     Route: 065
     Dates: start: 201210
  2. MAGNESIUM OXIDE. [Concomitant]
     Active Substance: MAGNESIUM OXIDE
     Dosage: TAKE 1 TABLET BY MOUTH DAILY
     Route: 048
  3. CELLCEPT [Suspect]
     Active Substance: MYCOPHENOLATE MOFETIL\MYCOPHENOLATE MOFETIL HYDROCHLORIDE
     Indication: AUTOIMMUNE HAEMOLYTIC ANAEMIA
  4. ASPIRIN. [Concomitant]
     Active Substance: ASPIRIN
     Route: 048
  5. NATURE-THROID [Concomitant]
     Active Substance: THYROID, PORCINE
     Dosage: TAKE 1 TABLET BY MOUTH 1 TIME EACH DAY
     Route: 048
  6. FISH OIL [Concomitant]
     Active Substance: FISH OIL
     Route: 048
  7. POTASSIUM GLUCONATE [Concomitant]
     Active Substance: POTASSIUM GLUCONATE
     Dosage: TAKE 1 TABLET BY MOUTH DAILY
     Route: 048
  8. CLARITIN [Concomitant]
     Active Substance: LORATADINE
     Dosage: 1 TABLET BY MOUTH 1 TIME EACH DAY
     Route: 048
  9. TOPROL XL [Concomitant]
     Active Substance: METOPROLOL SUCCINATE
     Dosage: TAKE 1 TABLET 50 MG BY MOUTH ONE TIME EACH DAY
     Route: 048
  10. LORATADINE. [Concomitant]
     Active Substance: LORATADINE
     Dosage: 1 TABLET BY MOUTH 1 TIME EACH DAY
     Route: 048
  11. VITAMIN D3 [Concomitant]
     Active Substance: CHOLECALCIFEROL
     Dosage: 1000 UNIT TABLET, TAKE 1 TABLET BY MOUTH 1 TIME A DAY
     Route: 048
  12. METOPROLOL SUCCINATE. [Concomitant]
     Active Substance: METOPROLOL SUCCINATE
     Dosage: TAKE 1 TABLET 50 MG BY MOUTH ONE TIME EACH DAY
     Route: 048
  13. COZAAR [Concomitant]
     Active Substance: LOSARTAN POTASSIUM
     Dosage: TAKE 1 TABLET BY MOUTH DAILY
     Route: 048
  14. CELLCEPT [Suspect]
     Active Substance: MYCOPHENOLATE MOFETIL\MYCOPHENOLATE MOFETIL HYDROCHLORIDE
     Indication: AUTOIMMUNE HEPATITIS
     Dosage: LAST TREATMENT DATE: //2014
     Route: 048
  15. CELLCEPT [Suspect]
     Active Substance: MYCOPHENOLATE MOFETIL\MYCOPHENOLATE MOFETIL HYDROCHLORIDE
     Indication: NONALCOHOLIC FATTY LIVER DISEASE
  16. VITAMIN C [Concomitant]
     Active Substance: ASCORBIC ACID
     Route: 048
  17. LASIX [Concomitant]
     Active Substance: FUROSEMIDE
     Route: 048
  18. SENOKOT-S [Concomitant]
     Active Substance: DOCUSATE SODIUM\SENNOSIDES
  19. LOSARTAN. [Concomitant]
     Active Substance: LOSARTAN
     Dosage: TAKE 1 TABLET BY MOUTH DAILY
     Route: 048
  20. CINNAMON. [Concomitant]
     Active Substance: CINNAMON
     Dosage: TAKE BY MOUTH 1 TIME EACH DAY
     Route: 048
  21. CELLCEPT [Suspect]
     Active Substance: MYCOPHENOLATE MOFETIL\MYCOPHENOLATE MOFETIL HYDROCHLORIDE
     Indication: NONALCOHOLIC FATTY LIVER DISEASE
  22. CELLCEPT [Suspect]
     Active Substance: MYCOPHENOLATE MOFETIL\MYCOPHENOLATE MOFETIL HYDROCHLORIDE
     Indication: AUTOIMMUNE HAEMOLYTIC ANAEMIA
  23. FUROSEMIDE. [Concomitant]
     Active Substance: FUROSEMIDE
     Route: 048

REACTIONS (3)
  - Thrombosis [Unknown]
  - Off label use [Unknown]
  - Intentional product use issue [Unknown]
